FAERS Safety Report 7105801-7 (Version None)
Quarter: 2010Q4

REPORT INFORMATION
  Report Type: 
  Country: None (occurrence: None)
  Receive Date: 20101116
  Receipt Date: 20101111
  Transmission Date: 20110411
  Serious: Yes (Death, Hospitalization)
  Sender: FDA-Public Use
  Company Number: PHEH2009US13901

PATIENT
  Sex: Female
  Weight: 71.8 kg

DRUGS (14)
  1. EXJADE [Suspect]
     Indication: SICKLE CELL ANAEMIA
     Dosage: 2000 MG, QD
     Route: 048
  2. EXJADE [Suspect]
     Dosage: 1000 MG, UNK
     Route: 048
  3. MIDODRINE HYDROCHLORIDE [Concomitant]
     Dosage: 5 MG, TID
     Route: 048
  4. KEPPRA [Concomitant]
     Dosage: 500 MG, BID
     Route: 048
  5. TIZANIDINE HCL [Concomitant]
     Dosage: 6 MG, PRN
     Route: 048
  6. GABAPENTIN [Concomitant]
     Dosage: 100 MG, AS DIRECTED
     Route: 048
  7. RANITIDINE [Concomitant]
  8. FENTANYL [Concomitant]
  9. FENOFIBRATE [Concomitant]
  10. WARFARIN [Concomitant]
  11. AMBIEN [Concomitant]
  12. FOLIC ACID [Concomitant]
  13. ZEMPLAR [Concomitant]
  14. CALCIUM CARBONATE [Concomitant]

REACTIONS (20)
  - ASTHENIA [None]
  - CEREBRAL ISCHAEMIA [None]
  - CEREBROVASCULAR ACCIDENT [None]
  - CONCOMITANT DISEASE AGGRAVATED [None]
  - COUGH [None]
  - DEATH [None]
  - DEHYDRATION [None]
  - DIALYSIS [None]
  - DIZZINESS [None]
  - FATIGUE [None]
  - GAIT DISTURBANCE [None]
  - HAEMATOCRIT DECREASED [None]
  - HAEMOGLOBIN DECREASED [None]
  - INTERNATIONAL NORMALISED RATIO INCREASED [None]
  - MEDICAL DEVICE COMPLICATION [None]
  - PRESYNCOPE [None]
  - SICKLE CELL ANAEMIA WITH CRISIS [None]
  - TRACHEAL DISORDER [None]
  - VERTEBRAL ARTERY OCCLUSION [None]
  - WHEEZING [None]
